FAERS Safety Report 6272650-1 (Version None)
Quarter: 2009Q3

REPORT INFORMATION
  Report Type: 
  Country: None (occurrence: None)
  Receive Date: 20090715
  Receipt Date: 20090715
  Transmission Date: 20100115
  Serious: Yes (Other)
  Sender: FDA-Public Use
  Company Number: None

PATIENT
  Age: 48 Year
  Sex: Female
  Weight: 107.9561 kg

DRUGS (1)
  1. THYROID TAB [Suspect]
     Indication: HYPOTHYROIDISM
     Dosage: 1 TABLET 2 TIMES PER DAY PO
     Route: 048
     Dates: start: 20030401, end: 20090709

REACTIONS (6)
  - CHEST PAIN [None]
  - DIZZINESS [None]
  - FLUSHING [None]
  - HYPOTHYROIDISM [None]
  - NAUSEA [None]
  - PRODUCT QUALITY ISSUE [None]
